APPROVED DRUG PRODUCT: TIVICAY
Active Ingredient: DOLUTEGRAVIR SODIUM
Strength: EQ 10MG BASE **Federal Register determination that product was not discontinued or withdrawn for safety or effectiveness reasons**
Dosage Form/Route: TABLET;ORAL
Application: N204790 | Product #002
Applicant: VIIV HEALTHCARE CO
Approved: Jun 9, 2016 | RLD: Yes | RS: No | Type: DISCN

PATENTS:
Patent 8129385 | Expires: Oct 5, 2027
Patent 9242986 | Expires: Dec 8, 2029
Patent 9242986*PED | Expires: Jun 8, 2030
Patent 8129385*PED | Expires: Apr 5, 2028